FAERS Safety Report 21989313 (Version 1)
Quarter: 2023Q1

REPORT INFORMATION
  Report Type: Spontaneous
  Country: US (occurrence: None)
  Receive Date: 20230212
  Receipt Date: 20230212
  Transmission Date: 20230417
  Serious: No
  Sender: FDA-Public Use
  Company Number: None

PATIENT
  Age: 43 Year
  Sex: Female
  Weight: 63.9 kg

DRUGS (4)
  1. OZEMPIC [Suspect]
     Active Substance: SEMAGLUTIDE
     Indication: Weight decreased
     Dosage: OTHER QUANTITY : 1 INJECTION(S);?OTHER FREQUENCY : ONCE A WEEK;?OTHER ROUTE : SUBQ INJECTION;?
     Route: 050
     Dates: start: 20221117
  2. OMEPRAZOLE [Concomitant]
     Active Substance: OMEPRAZOLE
  3. BUPROPION [Concomitant]
     Active Substance: BUPROPION
  4. VITAMINS [Concomitant]
     Active Substance: VITAMINS

REACTIONS (1)
  - Alopecia [None]

NARRATIVE: CASE EVENT DATE: 20230122
